FAERS Safety Report 15476255 (Version 2)
Quarter: 2018Q4

REPORT INFORMATION
  Report Type: Spontaneous
  Country: PL (occurrence: PL)
  Receive Date: 20181009
  Receipt Date: 20181126
  Transmission Date: 20190205
  Serious: Yes (Hospitalization, Other)
  Sender: FDA-Public Use
  Company Number: PHHY2018PL118307

PATIENT
  Age: 77 Year
  Sex: Female
  Weight: 47 kg

DRUGS (5)
  1. CONCOR COR [Concomitant]
     Active Substance: BISOPROLOL FUMARATE
     Indication: PRODUCT USED FOR UNKNOWN INDICATION
     Dosage: 2.5 MG, QD
     Route: 048
  2. XARELTO [Concomitant]
     Active Substance: RIVAROXABAN
     Indication: PRODUCT USED FOR UNKNOWN INDICATION
     Dosage: 20 MG, QD
     Route: 048
  3. TEGRETOL [Suspect]
     Active Substance: CARBAMAZEPINE
     Indication: CLUSTER HEADACHE
     Dosage: 2 DF, UNK
     Route: 048
     Dates: start: 20180725, end: 20180908
  4. LOZAP [Concomitant]
     Indication: PRODUCT USED FOR UNKNOWN INDICATION
     Dosage: 25 MG, QD
     Route: 048
  5. PANTOPRAZOL [Concomitant]
     Active Substance: PANTOPRAZOLE SODIUM
     Indication: PRODUCT USED FOR UNKNOWN INDICATION
     Dosage: 20 MG, QD
     Route: 048

REACTIONS (10)
  - Dermatitis [Not Recovered/Not Resolved]
  - Skin disorder [Unknown]
  - Erythema [Not Recovered/Not Resolved]
  - Oedema [Not Recovered/Not Resolved]
  - Malaise [Unknown]
  - Skin swelling [Recovering/Resolving]
  - Skin lesion [Unknown]
  - Product use in unapproved indication [Unknown]
  - Skin exfoliation [Not Recovered/Not Resolved]
  - Pruritus [Not Recovered/Not Resolved]

NARRATIVE: CASE EVENT DATE: 20180802
